FAERS Safety Report 21558961 (Version 1)
Quarter: 2022Q4

REPORT INFORMATION
  Report Type: Report from Study
  Country: US (occurrence: US)
  Receive Date: 20221107
  Receipt Date: 20221107
  Transmission Date: 20230113
  Serious: No
  Sender: FDA-Public Use
  Company Number: US-002147023-NVSC2022US249621

PATIENT
  Age: 58 Year
  Sex: Female

DRUGS (1)
  1. LETROZOLE [Suspect]
     Active Substance: LETROZOLE
     Indication: Product used for unknown indication
     Dosage: UNK
     Route: 065

REACTIONS (7)
  - Cognitive disorder [Unknown]
  - Sexual dysfunction [Unknown]
  - Crying [Unknown]
  - Viral load [Unknown]
  - Infectious mononucleosis [Unknown]
  - Anxiety [Unknown]
  - Osteoporosis [Unknown]
